FAERS Safety Report 16163941 (Version 4)
Quarter: 2019Q3

REPORT INFORMATION
  Report Type: Spontaneous
  Country: US (occurrence: US)
  Receive Date: 20190405
  Receipt Date: 20190910
  Transmission Date: 20191004
  Serious: Yes (Congenital Anomaly, Other)
  Sender: FDA-Public Use
  Company Number: PHEH2019US015033

PATIENT
  Sex: Male

DRUGS (1)
  1. ZOFRAN [Suspect]
     Active Substance: ONDANSETRON HYDROCHLORIDE
     Indication: FOETAL EXPOSURE DURING PREGNANCY
     Route: 064

REACTIONS (13)
  - Cardiac murmur [Unknown]
  - Cough [Unknown]
  - Dermal cyst [Unknown]
  - Atrial septal defect [Unknown]
  - Arthralgia [Unknown]
  - Chest pain [Unknown]
  - Dyspnoea [Unknown]
  - Ventricular septal defect [Unknown]
  - Foetal exposure during pregnancy [Unknown]
  - Injury [Unknown]
  - Dermatitis atopic [Unknown]
  - Dermatosis [Unknown]
  - Hordeolum [Unknown]
